FAERS Safety Report 11557571 (Version 2)
Quarter: 2015Q4

REPORT INFORMATION
  Report Type: Spontaneous
  Country: IT (occurrence: IT)
  Receive Date: 20150926
  Receipt Date: 20151013
  Transmission Date: 20160304
  Serious: Yes (Death, Other)
  Sender: FDA-Public Use
  Company Number: IT-BRISTOL-MYERS SQUIBB COMPANY-BMS-2015-051614

PATIENT
  Age: 85 Year
  Sex: Male

DRUGS (1)
  1. YERVOY [Suspect]
     Active Substance: IPILIMUMAB
     Indication: METASTATIC MALIGNANT MELANOMA
     Dosage: 3 MG/KG, QCYCLE
     Route: 042
     Dates: start: 20150529, end: 20150710

REACTIONS (10)
  - Packed red blood cell transfusion [Unknown]
  - Hyperferritinaemia [Unknown]
  - Hypoproteinaemia [Unknown]
  - Colitis ulcerative [Fatal]
  - Large intestine perforation [Fatal]
  - Anaemia [Unknown]
  - Hyponatraemia [Unknown]
  - Hypochloraemia [Unknown]
  - Hyperkalaemia [Unknown]
  - Hypothrombinaemia [Unknown]

NARRATIVE: CASE EVENT DATE: 20150721
